FAERS Safety Report 14588440 (Version 1)
Quarter: 2018Q1

REPORT INFORMATION
  Report Type: Spontaneous
  Country: IT (occurrence: IT)
  Receive Date: 20180301
  Receipt Date: 20180301
  Transmission Date: 20180509
  Serious: Yes (Other)
  Sender: FDA-Public Use
  Company Number: IT-MYLANLABS-2018M1014086

PATIENT
  Age: 42 Year
  Sex: Female

DRUGS (2)
  1. EPINEPHRINE. [Suspect]
     Active Substance: EPINEPHRINE
     Indication: LOCAL ANAESTHESIA
     Dosage: UNK
     Route: 065
  2. ARTICAINE [Suspect]
     Active Substance: ARTICAINE
     Indication: LOCAL ANAESTHESIA
     Dosage: UNK
     Route: 065

REACTIONS (1)
  - Type IV hypersensitivity reaction [Recovered/Resolved]
